FAERS Safety Report 8796723 (Version 2)
Quarter: 2015Q3

REPORT INFORMATION
  Report Type: Report from Study
  Country: US (occurrence: US)
  Receive Date: 20120917
  Receipt Date: 20150706
  Transmission Date: 20151125
  Serious: Yes (Death)
  Sender: FDA-Public Use
  Company Number: US-ROCHE-1128395

PATIENT
  Age: 50 Year
  Sex: Female

DRUGS (18)
  1. AVASTIN [Suspect]
     Active Substance: BEVACIZUMAB
     Route: 042
  2. TAXOTERE [Suspect]
     Active Substance: DOCETAXEL
     Indication: PRODUCT USED FOR UNKNOWN INDICATION
     Route: 042
  3. TAXOTERE [Suspect]
     Active Substance: DOCETAXEL
     Route: 042
  4. TAXOTERE [Suspect]
     Active Substance: DOCETAXEL
     Route: 042
  5. LUPRON [Concomitant]
     Active Substance: LEUPROLIDE ACETATE
     Route: 065
  6. AVASTIN [Suspect]
     Active Substance: BEVACIZUMAB
     Indication: BREAST CANCER FEMALE
     Route: 042
     Dates: start: 20051005
  7. TAXOTERE [Suspect]
     Active Substance: DOCETAXEL
     Route: 042
  8. NEULASTA [Concomitant]
     Active Substance: PEGFILGRASTIM
     Route: 058
  9. AVASTIN [Suspect]
     Active Substance: BEVACIZUMAB
     Route: 042
  10. ALOXI [Concomitant]
     Active Substance: PALONOSETRON HYDROCHLORIDE
     Route: 042
  11. ALTEPLASE [Concomitant]
     Active Substance: ALTEPLASE
     Route: 065
  12. DECADRON [Concomitant]
     Active Substance: DEXAMETHASONE
     Route: 042
  13. ARANESP [Concomitant]
     Active Substance: DARBEPOETIN ALFA
     Route: 058
  14. NEUPOGEN [Concomitant]
     Active Substance: FILGRASTIM
     Route: 042
  15. TAXOTERE [Suspect]
     Active Substance: DOCETAXEL
     Route: 042
  16. KYTRIL [Concomitant]
     Active Substance: GRANISETRON HYDROCHLORIDE
     Route: 042
  17. TRASTUZUMAB [Concomitant]
     Active Substance: TRASTUZUMAB
     Route: 065
  18. K-DUR [Concomitant]
     Active Substance: POTASSIUM CHLORIDE
     Indication: BLOOD POTASSIUM DECREASED
     Route: 065

REACTIONS (28)
  - Dyspnoea [Unknown]
  - Chest discomfort [Unknown]
  - Pain [Unknown]
  - Thrombocytopenia [Unknown]
  - Death [Fatal]
  - Decreased appetite [Unknown]
  - Paraesthesia [Unknown]
  - Pollakiuria [Unknown]
  - Bone disorder [Unknown]
  - Cholelithiasis [Unknown]
  - Abdominal distension [Unknown]
  - Dysphagia [Unknown]
  - Dyspnoea exertional [Unknown]
  - Fatigue [Unknown]
  - Nausea [Unknown]
  - Pyrexia [Unknown]
  - Asthenia [Unknown]
  - Dysuria [Unknown]
  - Vomiting [Unknown]
  - Weight increased [Unknown]
  - Epistaxis [Recovered/Resolved]
  - Ascites [Unknown]
  - Off label use [Unknown]
  - Nail disorder [Unknown]
  - Blood potassium decreased [Unknown]
  - Emotional distress [Unknown]
  - Cough [Unknown]
  - Hepatic lesion [Unknown]

NARRATIVE: CASE EVENT DATE: 20060519
